FAERS Safety Report 7967448-X (Version None)
Quarter: 2011Q4

REPORT INFORMATION
  Report Type: 
  Country: None (occurrence: None)
  Receive Date: 20111209
  Receipt Date: 20111130
  Transmission Date: 20120403
  Serious: Yes (Hospitalization)
  Sender: FDA-Public Use
  Company Number: JP-JNJFOC-20110812947

PATIENT
  Sex: Male
  Weight: 69 kg

DRUGS (6)
  1. REMICADE [Suspect]
     Route: 042
     Dates: start: 20110802
  2. ASACOL [Concomitant]
     Indication: COLITIS ULCERATIVE
     Route: 048
  3. CORTICOSTEROIDS [Suspect]
     Indication: ILL-DEFINED DISORDER
     Route: 065
  4. PREDNISOLONE [Suspect]
     Indication: COLITIS ULCERATIVE
     Route: 048
  5. REMICADE [Suspect]
     Indication: COLITIS ULCERATIVE
     Route: 042
     Dates: start: 20110719
  6. REMICADE [Suspect]
     Dosage: THIRD DOSE.
     Route: 042
     Dates: start: 20110830

REACTIONS (1)
  - HERPES ZOSTER [None]
